FAERS Safety Report 4663597-2 (Version None)
Quarter: 2005Q2

REPORT INFORMATION
  Report Type: 
  Country: None (occurrence: None)
  Receive Date: 20050517
  Receipt Date: 20050506
  Transmission Date: 20051028
  Serious: Yes (Hospitalization)
  Sender: FDA-Public Use
  Company Number: ES-ROCHE-403954

PATIENT
  Age: 61 Year
  Sex: Male
  Weight: 84 kg

DRUGS (7)
  1. DACLIZUMAB [Suspect]
     Route: 042
     Dates: start: 20040301, end: 20040426
  2. MYCOPHENOLATE MOFETIL [Suspect]
     Route: 048
     Dates: start: 20040301, end: 20041010
  3. MYCOPHENOLATE MOFETIL [Suspect]
     Route: 048
     Dates: start: 20041011
  4. TACROLIMUS [Suspect]
     Route: 048
     Dates: start: 20040301
  5. TACROLIMUS [Suspect]
     Route: 048
  6. PREDNISONE [Suspect]
     Route: 048
     Dates: start: 20040301
  7. RANITIDINE [Concomitant]
     Dates: start: 20040301

REACTIONS (1)
  - VARICELLA [None]
